FAERS Safety Report 23359926 (Version 2)
Quarter: 2024Q1

REPORT INFORMATION
  Report Type: Spontaneous
  Country: US (occurrence: US)
  Receive Date: 20240103
  Receipt Date: 20240205
  Transmission Date: 20240409
  Serious: Yes (Hospitalization)
  Sender: FDA-Public Use
  Company Number: US-BIOVITRUM-2023-US-021256

PATIENT
  Age: 12 Month
  Sex: Female

DRUGS (2)
  1. SYNAGIS [Suspect]
     Active Substance: PALIVIZUMAB
     Indication: Premature baby
     Dosage: EVERY 28 DAYS -30 DAYS
     Route: 030
     Dates: start: 20231115
  2. SYNAGIS [Suspect]
     Active Substance: PALIVIZUMAB
     Dosage: EVERY 28 DAYS -30 DAYS
     Route: 030
     Dates: start: 20221214, end: 20240129

REACTIONS (2)
  - Pyrexia [Unknown]
  - White blood cell count increased [Unknown]
